FAERS Safety Report 6961276-X (Version None)
Quarter: 2010Q3

REPORT INFORMATION
  Report Type: 
  Country: None (occurrence: None)
  Receive Date: 20100901
  Receipt Date: 20100830
  Transmission Date: 20110219
  Serious: Yes (Death)
  Sender: FDA-Public Use
  Company Number: A0874209A

PATIENT
  Age: 87 Year
  Sex: Female
  Weight: 70.1 kg

DRUGS (12)
  1. VOTRIENT [Suspect]
     Indication: RENAL CANCER
     Dosage: 200MG IN THE MORNING
     Route: 048
     Dates: start: 20100523, end: 20100727
  2. FOLIC [Concomitant]
     Dosage: 1MG PER DAY
     Route: 048
     Dates: start: 20100106, end: 20100727
  3. LIPITOR [Concomitant]
     Dosage: 20MG PER DAY
     Route: 048
     Dates: start: 20090706, end: 20100727
  4. ZETIA [Concomitant]
     Dosage: 10MG PER DAY
     Route: 048
     Dates: start: 20090706, end: 20100727
  5. TYLENOL-500 [Concomitant]
     Route: 048
     Dates: start: 20100217, end: 20100727
  6. VIT E [Concomitant]
     Dosage: 4TAB PER DAY
     Route: 048
     Dates: start: 20090706, end: 20100727
  7. METOPROLOL TARTRATE [Concomitant]
     Dosage: 50MG TWICE PER DAY
     Route: 048
     Dates: start: 20090706, end: 20100727
  8. ANTIBIOTIC [Concomitant]
     Route: 048
  9. ARANESP [Concomitant]
     Route: 058
     Dates: start: 20090721, end: 20100330
  10. PHENAZOPYRIDINE HCL TAB [Concomitant]
     Dosage: 200MG THREE TIMES PER DAY
     Route: 048
     Dates: start: 20091009, end: 20100727
  11. CLEOCIN LOTION [Concomitant]
     Dates: start: 20090915, end: 20100727
  12. DARBEPOETIN ALFA [Concomitant]
     Route: 042
     Dates: start: 20100415, end: 20100513

REACTIONS (2)
  - DIALYSIS [None]
  - RENAL FAILURE [None]
